FAERS Safety Report 26062111 (Version 3)
Quarter: 2025Q4

REPORT INFORMATION
  Report Type: Report from Study
  Country: US (occurrence: US)
  Receive Date: 20251119
  Receipt Date: 20251124
  Transmission Date: 20260117
  Serious: Yes (Hospitalization, Other)
  Sender: ABBVIE
  Company Number: US-ABBVIE-6550551

PATIENT
  Sex: Male

DRUGS (2)
  1. IMBRUVICA [Suspect]
     Active Substance: IBRUTINIB
     Indication: Waldenstrom^s macroglobulinaemia
     Dosage: DOSE;140 MG
     Route: 048
     Dates: start: 20221109
  2. AMLODIPINE [Suspect]
     Active Substance: AMLODIPINE BESYLATE
     Indication: Product used for unknown indication
     Route: 065

REACTIONS (7)
  - Hypotension [Recovering/Resolving]
  - Product use complaint [Unknown]
  - Dementia [Unknown]
  - Stenosis [Unknown]
  - Wrong technique in product usage process [Unknown]
  - Blood pressure systolic increased [Unknown]
  - Dialysis [Unknown]
